FAERS Safety Report 6805795-5 (Version None)
Quarter: 2010Q2

REPORT INFORMATION
  Report Type: 
  Country: None (occurrence: None)
  Receive Date: 20100629
  Receipt Date: 20090616
  Transmission Date: 20101027
  Serious: No
  Sender: FDA-Public Use
  Company Number: US-PFIZER INC-2005131013

PATIENT
  Sex: Male

DRUGS (4)
  1. VIAGRA [Suspect]
     Indication: ERECTILE DYSFUNCTION
     Dosage: 100 MG, UNK
     Route: 065
  2. LEVITRA [Suspect]
     Indication: ILL-DEFINED DISORDER
     Route: 065
  3. CIALIS [Suspect]
  4. ALPROSTADIL [Suspect]

REACTIONS (1)
  - ERECTILE DYSFUNCTION [None]
